FAERS Safety Report 9260012 (Version 2)
Quarter: 2013Q2

REPORT INFORMATION
  Report Type: Spontaneous
  Country: BR (occurrence: BR)
  Receive Date: 20130429
  Receipt Date: 20130513
  Transmission Date: 20140414
  Serious: Yes (Other)
  Sender: FDA-Public Use
  Company Number: BR-JNJFOC-20130410422

PATIENT
  Sex: 0

DRUGS (1)
  1. METHYLPHENIDATE HYDROCHLORIDE [Suspect]
     Indication: ATTENTION DEFICIT/HYPERACTIVITY DISORDER
     Route: 048

REACTIONS (18)
  - Myocardial infarction [Unknown]
  - Attention deficit/hyperactivity disorder [Unknown]
  - Brain injury [Unknown]
  - Growth retardation [Unknown]
  - Hypertension [Unknown]
  - Major depression [Unknown]
  - Drug dependence [Unknown]
  - Anxiety [Unknown]
  - Tachycardia [Unknown]
  - Decreased appetite [Unknown]
  - Weight decreased [Unknown]
  - Insomnia [Unknown]
  - Headache [Unknown]
  - Irritability [Unknown]
  - Drug abuse [Unknown]
  - Drug prescribing error [Unknown]
  - Abdominal pain [Unknown]
  - Nausea [Unknown]
